FAERS Safety Report 4783343-1 (Version None)
Quarter: 2005Q3

REPORT INFORMATION
  Report Type: 
  Country: None (occurrence: None)
  Receive Date: 20050929
  Receipt Date: 20050228
  Transmission Date: 20060218
  Serious: Yes (Other)
  Sender: FDA-Public Use
  Company Number: JP-ROCHE-409093

PATIENT
  Age: 83 Year
  Sex: Female

DRUGS (4)
  1. TAMIFLU [Suspect]
     Route: 048
     Dates: start: 20050220, end: 20050221
  2. SALAC [Concomitant]
     Route: 048
     Dates: start: 20050219, end: 20050225
  3. LETRAC [Concomitant]
     Route: 048
     Dates: start: 20050220, end: 20050220
  4. AMANTADINE HCL [Concomitant]
     Route: 048
     Dates: start: 20050221, end: 20050225

REACTIONS (5)
  - GASTROINTESTINAL HAEMORRHAGE [None]
  - HAEMATEMESIS [None]
  - MELAENA [None]
  - MOUTH HAEMORRHAGE [None]
  - VOMITING [None]
